FAERS Safety Report 24562709 (Version 1)
Quarter: 2024Q4

REPORT INFORMATION
  Report Type: Spontaneous
  Country: US (occurrence: US)
  Receive Date: 20241029
  Receipt Date: 20241029
  Transmission Date: 20250114
  Serious: Yes (Death, Life-Threatening, Hospitalization, Other)
  Sender: ORIENT PHARMA
  Company Number: US-Orient Pharma-000286

PATIENT
  Age: 54 Year
  Sex: Male

DRUGS (8)
  1. VANCOMYCIN HYDROCHLORIDE [Interacting]
     Active Substance: VANCOMYCIN HYDROCHLORIDE
     Indication: Sepsis
  2. ALLOPURINOL [Interacting]
     Active Substance: ALLOPURINOL
     Indication: Gout
  3. PIPERACILLIN AND TAZOBACTAM [Concomitant]
     Active Substance: PIPERACILLIN SODIUM\TAZOBACTAM SODIUM
  4. SODIUM BICARBONATE [Concomitant]
     Active Substance: SODIUM BICARBONATE
  5. REMDESIVIR [Concomitant]
     Active Substance: REMDESIVIR
  6. CLINDAMYCIN [Concomitant]
     Active Substance: CLINDAMYCIN
  7. CEFAZOLIN [Concomitant]
     Active Substance: CEFAZOLIN
  8. PHENYLEPHRINE [Concomitant]
     Active Substance: PHENYLEPHRINE HYDROCHLORIDE

REACTIONS (4)
  - Drug interaction [Unknown]
  - Drug reaction with eosinophilia and systemic symptoms [Unknown]
  - Haemophagocytic lymphohistiocytosis [Fatal]
  - Toxic epidermal necrolysis [Unknown]
